FAERS Safety Report 6057473-0 (Version None)
Quarter: 2009Q1

REPORT INFORMATION
  Report Type: 
  Country: None (occurrence: None)
  Receive Date: 20090129
  Receipt Date: 20090119
  Transmission Date: 20090719
  Serious: Yes (Other)
  Sender: FDA-Public Use
  Company Number: IT-ABBOTT-09P-083-0498567-00

PATIENT
  Age: 53 Year
  Sex: Male

DRUGS (7)
  1. CYCLOSPORINE [Suspect]
     Indication: IMMUNOSUPPRESSANT DRUG THERAPY
     Dosage: NOT REPORTED
     Dates: start: 20020201
  2. CYCLOSPORINE [Suspect]
  3. CYCLOSPORINE [Suspect]
  4. CYCLOSPORINE [Suspect]
  5. ERLOTINIB [Suspect]
     Indication: DRUG USE FOR UNKNOWN INDICATION
  6. CARBOPLATIN [Concomitant]
     Indication: CHEMOTHERAPY
     Dosage: NOT REPORTED
  7. PACLITAXEL [Concomitant]
     Indication: DRUG USE FOR UNKNOWN INDICATION
     Dosage: NOT REPORTED

REACTIONS (5)
  - DIARRHOEA [None]
  - DRUG INTERACTION [None]
  - NEUTROPENIA [None]
  - SKIN TOXICITY [None]
  - THERAPEUTIC AGENT TOXICITY [None]
